FAERS Safety Report 10363415 (Version 1)
Quarter: 2014Q3

REPORT INFORMATION
  Report Type: Spontaneous
  Country: US (occurrence: None)
  Receive Date: 20140804
  Receipt Date: 20140804
  Transmission Date: 20150326
  Serious: No
  Sender: FDA-Public Use
  Company Number: None

PATIENT
  Sex: Male

DRUGS (7)
  1. CALCIUM CARB [Concomitant]
  2. BICALUTAMIDE. [Concomitant]
     Active Substance: BICALUTAMIDE
  3. VICODIN [Concomitant]
     Active Substance: ACETAMINOPHEN\HYDROCODONE BITARTRATE
  4. XTANDI [Suspect]
     Active Substance: ENZALUTAMIDE
     Indication: PROSTATE CANCER
     Route: 048
  5. MEGESTROL [Concomitant]
     Active Substance: MEGESTROL
  6. PREDNISONE. [Concomitant]
     Active Substance: PREDNISONE
  7. AVLOCETRINE [Concomitant]

REACTIONS (4)
  - Nausea [None]
  - Muscle spasms [None]
  - Fatigue [None]
  - Chills [None]

NARRATIVE: CASE EVENT DATE: 2014
